FAERS Safety Report 10274017 (Version 1)
Quarter: 2014Q3

REPORT INFORMATION
  Report Type: Report from Study
  Country: BR (occurrence: BR)
  Receive Date: 20140702
  Receipt Date: 20140702
  Transmission Date: 20150326
  Serious: Yes (Death)
  Sender: FDA-Public Use
  Company Number: PHHY2014BR081545

PATIENT
  Sex: Female
  Weight: 24 kg

DRUGS (2)
  1. DRUG THERAPY NOS [Concomitant]
     Active Substance: UNSPECIFIED INGREDIENT
     Indication: CONVULSION
     Dosage: UNK UKN, UNK
     Dates: end: 20130807
  2. TRILEPTAL [Suspect]
     Active Substance: OXCARBAZEPINE
     Indication: CONVULSION
     Dosage: 2 ML, BID (IN THE MORNING AND AT NIGHT)
     Route: 048

REACTIONS (1)
  - Respiratory failure [Fatal]
